FAERS Safety Report 6662942-6 (Version None)
Quarter: 2010Q2

REPORT INFORMATION
  Report Type: 
  Country: None (occurrence: None)
  Receive Date: 20100401
  Receipt Date: 20100324
  Transmission Date: 20101027
  Serious: Yes (Other)
  Sender: FDA-Public Use
  Company Number: GB-TEVA-219610ISR

PATIENT
  Age: 23 Year
  Sex: Female
  Weight: 88 kg

DRUGS (2)
  1. SERTRALINE HCL [Suspect]
     Route: 048
     Dates: start: 20080401, end: 20080501
  2. SERTRALINE HCL [Suspect]
     Dates: end: 20090501

REACTIONS (1)
  - PSORIASIS [None]
